FAERS Safety Report 5045188-7 (Version None)
Quarter: 2006Q3

REPORT INFORMATION
  Report Type: 
  Country: None (occurrence: None)
  Receive Date: 20060707
  Receipt Date: 20060501
  Transmission Date: 20061208
  Serious: Yes (Other)
  Sender: FDA-Public Use
  Company Number: US-GLAXOSMITHKLINE-A0604247A

PATIENT
  Sex: Female
  Weight: 3.1 kg

DRUGS (10)
  1. COMBIVIR [Suspect]
     Indication: HIV INFECTION
     Dosage: 2TAB PER DAY
     Dates: start: 20051117, end: 20060109
  2. EPIVIR [Suspect]
     Indication: HIV INFECTION
     Dosage: 300MGD UNKNOWN
     Dates: start: 20060106, end: 20060403
  3. VIRACEPT [Concomitant]
     Indication: HIV INFECTION
     Dosage: 2500MGD UNKNOWN
     Dates: start: 20051114, end: 20060403
  4. ZERIT [Concomitant]
     Indication: HIV INFECTION
     Dosage: 80MGD UNKNOWN
     Dates: start: 20060106, end: 20060403
  5. LEVAQUIN [Concomitant]
  6. AVELOX [Concomitant]
  7. AZITHROMYCIN [Concomitant]
  8. PITOCIN [Concomitant]
  9. ACYCLOVIR [Concomitant]
  10. BACTRIM [Concomitant]

REACTIONS (11)
  - CHORIOAMNIONITIS [None]
  - DRUG EXPOSURE DURING PREGNANCY [None]
  - FOETAL DISTRESS SYNDROME [None]
  - FUNISITIS [None]
  - ISCHAEMIA [None]
  - MECONIUM ABNORMAL [None]
  - MUSCLE DISORDER [None]
  - NEONATAL ASPIRATION [None]
  - PHLEBITIS [None]
  - PLACENTAL NECROSIS [None]
  - STILLBIRTH [None]
